FAERS Safety Report 5747510-2 (Version None)
Quarter: 2008Q2

REPORT INFORMATION
  Report Type: 
  Country: None (occurrence: None)
  Receive Date: 20080523
  Receipt Date: 20080513
  Transmission Date: 20081010
  Serious: Yes (Death)
  Sender: FDA-Public Use
  Company Number: US-ROCHE-560579

PATIENT
  Sex: Male

DRUGS (2)
  1. PEG-INTERFERON A-2A (RO 25-8310) [Suspect]
     Indication: DRUG USE FOR UNKNOWN INDICATION
     Dosage: DAY 5 OR 6 OF WEEK
     Route: 058
     Dates: start: 20070716, end: 20080305
  2. RIBAVIRIN [Suspect]
     Indication: DRUG USE FOR UNKNOWN INDICATION
     Dosage: 2 IN THE MORNING AND THREE IN THE EVENING
     Route: 048
     Dates: start: 20070716, end: 20080305

REACTIONS (2)
  - RESPIRATORY FUME INHALATION DISORDER [None]
  - THERMAL BURN [None]
